FAERS Safety Report 9148829 (Version 1)
Quarter: 2013Q1

REPORT INFORMATION
  Report Type: Spontaneous
  Country: DE (occurrence: None)
  Receive Date: 20130130
  Receipt Date: 20130130
  Transmission Date: 20140127
  Serious: Yes (Other)
  Sender: FDA-Public Use
  Company Number: AUR-APL-2013-00887

PATIENT
  Age: 64 Year
  Sex: Female

DRUGS (1)
  1. RAMIPRIL (RAMIPRIL) [Suspect]
     Indication: HYPERTENSION
     Dosage: 2.5 MG  (2.5 MG, 1 IN 1 D), UNKNOWN?01/04/2012  -  STOPPED
     Dates: start: 20120404

REACTIONS (3)
  - Amaurosis fugax [None]
  - Diplopia [None]
  - Glycosylated haemoglobin increased [None]
